FAERS Safety Report 5107444-3 (Version None)
Quarter: 2006Q3

REPORT INFORMATION
  Report Type: 
  Country: None (occurrence: None)
  Receive Date: 20060731
  Receipt Date: 20060402
  Transmission Date: 20061208
  Serious: No
  Sender: FDA-Public Use
  Company Number: 2006PV011349

PATIENT
  Age: 55 Year
  Sex: Female
  Weight: 79.3795 kg

DRUGS (10)
  1. BYETTA [Suspect]
     Indication: DIABETES MELLITUS NON-INSULIN-DEPENDENT
     Dosage: SEE IMAGE
     Route: 058
     Dates: start: 20060306, end: 20060406
  2. BYETTA [Suspect]
     Indication: DIABETES MELLITUS NON-INSULIN-DEPENDENT
     Dosage: SEE IMAGE
     Route: 058
     Dates: start: 20060407
  3. BYETTA [Suspect]
  4. BYETTA [Suspect]
  5. METFORMIN HCL [Concomitant]
  6. AVANDIA [Concomitant]
  7. GLIPIZIDE [Concomitant]
  8. ACTOS [Concomitant]
  9. ACTOS + METFORMIN [Concomitant]
  10. NEXIUM [Concomitant]

REACTIONS (3)
  - BLOOD GLUCOSE INCREASED [None]
  - NAUSEA [None]
  - WEIGHT DECREASED [None]
